FAERS Safety Report 6755045-3 (Version None)
Quarter: 2010Q2

REPORT INFORMATION
  Report Type: 
  Country: None (occurrence: None)
  Receive Date: 20100524
  Receipt Date: 20100216
  Transmission Date: 20101027
  Serious: No
  Sender: FDA-Public Use
  Company Number: 007105

PATIENT
  Sex: Female
  Weight: 110 kg

DRUGS (6)
  1. CIMZIA [Suspect]
     Indication: CROHN'S DISEASE
     Dosage: 400 MG MONTHLY SUBCUTANEOUS
     Route: 058
     Dates: start: 20090408
  2. METFORMIN [Concomitant]
  3. OYSTER SHELL CALCIUM WITH VITAMIN D [Concomitant]
  4. GLYBURIDE [Concomitant]
  5. LISINOPRIL [Concomitant]
  6. ASACOL [Concomitant]

REACTIONS (2)
  - DERMATITIS [None]
  - FURUNCLE [None]
